FAERS Safety Report 19512027 (Version 4)
Quarter: 2022Q1

REPORT INFORMATION
  Report Type: Spontaneous
  Country: FR (occurrence: FR)
  Receive Date: 20210709
  Receipt Date: 20220107
  Transmission Date: 20220423
  Serious: Yes (Hospitalization, Other)
  Sender: FDA-Public Use
  Company Number: FR-SUN PHARMACEUTICAL INDUSTRIES LTD-2020RR-274675

PATIENT
  Age: 67 Year
  Sex: Male

DRUGS (13)
  1. BEVACIZUMAB [Suspect]
     Active Substance: BEVACIZUMAB
     Indication: Prolactin-producing pituitary tumour
     Dosage: 15 MILLIGRAM/KILOGRAM, Q3W
     Dates: start: 202003
  2. TEMOZOLOMIDE [Suspect]
     Active Substance: TEMOZOLOMIDE
     Indication: Prolactin-producing pituitary tumour
     Dosage: 220-290 MG, DAILY, FOR 5 OUT OF 28 DAYS
     Route: 065
     Dates: start: 201907, end: 202001
  3. CABERGOLINE [Suspect]
     Active Substance: CABERGOLINE
     Indication: Prolactin-producing pituitary tumour
     Dosage: 1 MILLIGRAM, DAILY
     Route: 065
  4. CABERGOLINE [Suspect]
     Active Substance: CABERGOLINE
     Dosage: 0.5 MILLIGRAM, QD
     Route: 065
     Dates: start: 201301
  5. CABERGOLINE [Suspect]
     Active Substance: CABERGOLINE
     Dosage: 1 MILLIGRAM, QD
     Route: 065
     Dates: start: 201306
  6. CABERGOLINE [Suspect]
     Active Substance: CABERGOLINE
     Dosage: 10.5 MILLIGRAM, QW
     Route: 065
     Dates: start: 2019, end: 201907
  7. CABERGOLINE [Suspect]
     Active Substance: CABERGOLINE
     Dosage: 0.5 MILLIGRAM X 3/WEEK
     Route: 065
  8. CABERGOLINE [Suspect]
     Active Substance: CABERGOLINE
     Dosage: 5 MILLIGRAM, Q3W
     Dates: start: 2012
  9. CABERGOLINE [Suspect]
     Active Substance: CABERGOLINE
     Dosage: 5 MILLIGRAM, QD
     Dates: start: 201301
  10. PASIREOTIDE [Suspect]
     Active Substance: PASIREOTIDE
     Indication: Prolactin-producing pituitary tumour
     Dosage: 0.6-0.9 MG BID
     Route: 065
     Dates: start: 201903
  11. IPILIMUMAB [Suspect]
     Active Substance: IPILIMUMAB
     Indication: Prolactin-producing pituitary tumour
     Dosage: 1 MILLIGRAM/KILOGRAM, Q3W, RECEIVED TWO CYCLES
     Dates: start: 202001, end: 202002
  12. NIVOLUMAB [Suspect]
     Active Substance: NIVOLUMAB
     Indication: Prolactin-producing pituitary tumour
     Dosage: 3 MILLIGRAM/KILOGRAM, Q3W, RECEIVED 2 CYCLES
     Dates: start: 202001, end: 202002
  13. METHYLPREDNISOLONE [Concomitant]
     Active Substance: METHYLPREDNISOLONE
     Indication: Prolactin-producing pituitary tumour
     Dosage: UNK, QD, UP TO 80 MG DAILY
     Dates: start: 2019, end: 201912

REACTIONS (10)
  - Drug ineffective [Unknown]
  - Hypertension [Unknown]
  - Epistaxis [Unknown]
  - Neoplasm progression [Unknown]
  - Disease recurrence [Unknown]
  - Electrocardiogram QT prolonged [Unknown]
  - Diarrhoea [Unknown]
  - Nausea [Unknown]
  - Vomiting [Unknown]
  - Off label use [Unknown]

NARRATIVE: CASE EVENT DATE: 20200101
